FAERS Safety Report 15207386 (Version 1)
Quarter: 2018Q3

REPORT INFORMATION
  Report Type: Spontaneous
  Country: GB (occurrence: GB)
  Receive Date: 20180727
  Receipt Date: 20180727
  Transmission Date: 20181010
  Serious: Yes (Other)
  Sender: FDA-Public Use
  Company Number: GB-PFIZER INC-2018296680

PATIENT
  Age: 56 Year
  Sex: Female
  Weight: 70 kg

DRUGS (2)
  1. SULFASALAZINE. [Suspect]
     Active Substance: SULFASALAZINE
     Dosage: UNK
     Dates: start: 20180625
  2. FEXOFENADINE [Concomitant]
     Active Substance: FEXOFENADINE\FEXOFENADINE HYDROCHLORIDE
     Dosage: 1 DF, 1X/DAY
     Dates: start: 20180625

REACTIONS (6)
  - Swollen tongue [Unknown]
  - Rash [Not Recovered/Not Resolved]
  - Gingival swelling [Unknown]
  - Mouth swelling [Unknown]
  - Generalised erythema [Unknown]
  - Oral pain [Recovering/Resolving]

NARRATIVE: CASE EVENT DATE: 20180625
